FAERS Safety Report 10153529 (Version 2)
Quarter: 2014Q2

REPORT INFORMATION
  Report Type: Spontaneous
  Country: US (occurrence: US)
  Receive Date: 20140505
  Receipt Date: 20140505
  Transmission Date: 20141212
  Serious: Yes (Other)
  Sender: FDA-Public Use
  Company Number: PHHY2013US022749

PATIENT
  Age: 55 Year
  Sex: Male

DRUGS (10)
  1. BACLOFEN INTRATHECAL [Suspect]
     Indication: PAIN
     Dosage: UNK
     Route: 037
  2. BACLOFEN INTRATHECAL [Suspect]
     Dosage: 10 %, UNK
     Route: 037
  3. BACLOFEN INTRATHECAL [Suspect]
     Dosage: UNK UKN, UNK
     Route: 037
  4. BACLOFEN [Suspect]
     Dosage: 240 MG, UNK
     Route: 048
  5. CLONAZEPAM [Suspect]
     Dosage: 2 MG, TID
     Route: 048
  6. HYDROMORPHONE [Suspect]
     Dosage: 240.4 MG, UNK
     Route: 048
  7. MORPHINE SULFATE [Suspect]
     Dosage: EVERY 12 HOURS
     Route: 048
  8. DILAUDID [Suspect]
     Dosage: UNK UKN, UNK
     Route: 037
  9. KADIAN [Suspect]
     Dosage: 50 MG,
  10. AMBIEN [Suspect]
     Dosage: UNK UKN, UNK

REACTIONS (13)
  - Impaired healing [Unknown]
  - Liver disorder [Unknown]
  - Alcoholism [Unknown]
  - Leukaemia [Unknown]
  - Back pain [Unknown]
  - Convulsion [Unknown]
  - Scab [Unknown]
  - Hyperhidrosis [Unknown]
  - Diarrhoea [Unknown]
  - Vomiting [Unknown]
  - Pain [Unknown]
  - Therapeutic response decreased [Unknown]
  - Drug withdrawal syndrome [Unknown]
